FAERS Safety Report 6633784-2 (Version None)
Quarter: 2010Q1

REPORT INFORMATION
  Report Type: 
  Country: None (occurrence: None)
  Receive Date: 20100315
  Receipt Date: 20100304
  Transmission Date: 20100710
  Serious: Yes (Other)
  Sender: FDA-Public Use
  Company Number: US-BAYER-201015954NA

PATIENT
  Sex: Female

DRUGS (1)
  1. YAZ [Suspect]
     Indication: DRUG USE FOR UNKNOWN INDICATION
     Dosage: MISSED MANY PILLS DUE TO SURGERY
     Route: 048
     Dates: start: 20090101

REACTIONS (2)
  - TONSILLAR DISORDER [None]
  - VAGINAL HAEMORRHAGE [None]
